FAERS Safety Report 7686313-9 (Version None)
Quarter: 2011Q3

REPORT INFORMATION
  Report Type: 
  Country: None (occurrence: None)
  Receive Date: 20110816
  Receipt Date: 20110809
  Transmission Date: 20111222
  Serious: Yes (Hospitalization)
  Sender: FDA-Public Use
  Company Number: AU-B.I. PHARMACEUTICALS,INC./RIDGEFIELD-2011-AU-00547AU

PATIENT
  Sex: Female
  Weight: 73 kg

DRUGS (12)
  1. MICARDIS [Concomitant]
     Dosage: 80 MG
  2. MOVIPREP [Concomitant]
     Dosage: 1 SACHET DAILY
  3. LASIX [Concomitant]
     Dosage: 80 MG
  4. POLY VISC LUBRICATING EYE OINTMENT [Concomitant]
     Dosage: SMALL AMOUNT BOTH EYES BEFORE BED
     Route: 061
  5. SIGMAXIN [Concomitant]
     Dosage: 62.5 MCG
  6. VENTOLIN HFA [Concomitant]
     Dosage: 2 PUFFS EVERY 4 HRS AS NEEDED
     Route: 055
  7. RAMIPRIL-DP [Concomitant]
     Dosage: 2.5 MG
  8. CELLUFRESH [Concomitant]
     Dosage: 5 MG/ML 1 DROP IN EACH EYE
     Route: 061
  9. PRADAXA [Suspect]
     Indication: CEREBROVASCULAR ACCIDENT PROPHYLAXIS
     Dosage: 220 MG
     Route: 048
     Dates: start: 20110604, end: 20110702
  10. ACTONEL COMBI D [Concomitant]
  11. ALDACTONE [Concomitant]
     Dosage: 25 MG
  12. SERETIDE [Concomitant]
     Dosage: 250/25 1 PUFF TWICE DAILY
     Route: 055

REACTIONS (1)
  - OEDEMA PERIPHERAL [None]
